FAERS Safety Report 19473945 (Version 1)
Quarter: 2021Q2

REPORT INFORMATION
  Report Type: Spontaneous
  Country: AR (occurrence: AR)
  Receive Date: 20210629
  Receipt Date: 20210629
  Transmission Date: 20210717
  Serious: Yes (Other)
  Sender: FDA-Public Use
  Company Number: AR-PFIZER INC-2021747988

PATIENT
  Age: 10 Year
  Sex: Male

DRUGS (1)
  1. GENOTROPIN [Suspect]
     Active Substance: SOMATROPIN
     Indication: HYPOPITUITARISM
     Dosage: 1 TO 1.4 MG, 6 TIMES A WEEK
     Dates: start: 20140908, end: 202105

REACTIONS (2)
  - Brain neoplasm [Unknown]
  - Disease recurrence [Unknown]

NARRATIVE: CASE EVENT DATE: 202105
